FAERS Safety Report 15042981 (Version 1)
Quarter: 2018Q2

REPORT INFORMATION
  Report Type: Other
  Country: CA (occurrence: CA)
  Receive Date: 20180621
  Receipt Date: 20180621
  Transmission Date: 20180711
  Serious: Yes (Other)
  Sender: FDA-Public Use
  Company Number: CA-APOTEX-2018AP015771

PATIENT
  Age: 45 Year
  Sex: Female

DRUGS (2)
  1. METHOTREXATE. [Suspect]
     Active Substance: METHOTREXATE
     Indication: RHEUMATOID ARTHRITIS
     Dosage: 25 MG, UNK
     Route: 058
  2. LEFLUNOMIDE. [Suspect]
     Active Substance: LEFLUNOMIDE
     Indication: RHEUMATOID ARTHRITIS
     Dosage: 20 MG, UNK
     Route: 048

REACTIONS (11)
  - Malaise [Unknown]
  - Paraesthesia [Unknown]
  - Abdominal discomfort [Unknown]
  - Nausea [Unknown]
  - Treatment failure [Unknown]
  - Respiratory tract infection [Unknown]
  - Vomiting [Unknown]
  - Headache [Unknown]
  - Drug hypersensitivity [Unknown]
  - Infection [Unknown]
  - Drug ineffective [Unknown]
